FAERS Safety Report 12909655 (Version 4)
Quarter: 2018Q4

REPORT INFORMATION
  Report Type: Spontaneous
  Country: IN (occurrence: IN)
  Receive Date: 20161104
  Receipt Date: 20181108
  Transmission Date: 20190204
  Serious: Yes (Other)
  Sender: FDA-Public Use
  Company Number: IN-ROCHE-1850210

PATIENT
  Age: 32 Year
  Sex: Male

DRUGS (4)
  1. METALYSE [Suspect]
     Active Substance: TENECTEPLASE
     Indication: PULMONARY EMBOLISM
     Route: 040
  2. WARFARIN [Concomitant]
     Active Substance: WARFARIN
     Route: 048
  3. HEPARIN [Concomitant]
     Active Substance: HEPARIN SODIUM
     Dosage: 1000 IU/HR
     Route: 065
  4. STREPTOKINASE [Concomitant]
     Active Substance: STREPTOKINASE
     Dosage: 100,000 U/HR OVER 24 HOURS
     Route: 065

REACTIONS (1)
  - Pulmonary embolism [Unknown]
